FAERS Safety Report 7942629-X (Version None)
Quarter: 2011Q4

REPORT INFORMATION
  Report Type: 
  Country: None (occurrence: None)
  Receive Date: 20111128
  Receipt Date: 20111117
  Transmission Date: 20120403
  Serious: Yes (Death)
  Sender: FDA-Public Use
  Company Number: US-CELGENEUS-163-21880-11101900

PATIENT
  Sex: Female
  Weight: 66.738 kg

DRUGS (10)
  1. VITAMIN D [Concomitant]
     Route: 065
  2. REVLIMID [Suspect]
     Indication: MULTIPLE MYELOMA
     Dosage: 10 MILLIGRAM
     Route: 048
     Dates: start: 20110527, end: 20110804
  3. PRAVASTATIN [Concomitant]
     Route: 065
  4. METFORMIN HCL [Concomitant]
     Route: 065
  5. MULTI-VITAMIN [Concomitant]
     Route: 065
  6. SYNTHROID [Concomitant]
     Route: 065
  7. DECADRON [Concomitant]
     Route: 065
  8. ASPIRIN [Concomitant]
     Route: 065
  9. ASCORBIC ACID [Concomitant]
     Route: 065
  10. VITAMIN E [Concomitant]
     Route: 065

REACTIONS (2)
  - PNEUMONIA [None]
  - MULTIPLE MYELOMA [None]
